FAERS Safety Report 7539845-8 (Version None)
Quarter: 2011Q2

REPORT INFORMATION
  Report Type: 
  Country: None (occurrence: None)
  Receive Date: 20110610
  Receipt Date: 20110601
  Transmission Date: 20111010
  Serious: Yes (Hospitalization)
  Sender: FDA-Public Use
  Company Number: BR-ASTRAZENECA-2010SE29539

PATIENT
  Age: 17515 Day
  Sex: Female

DRUGS (18)
  1. FERROUS SULFATE TAB [Suspect]
     Route: 065
  2. METFORMIN HCL [Suspect]
     Indication: DIABETES MELLITUS
     Route: 048
     Dates: end: 20110219
  3. FERROUS SULFATE TAB [Concomitant]
     Indication: ANAEMIA
     Route: 048
     Dates: start: 20091126, end: 20110224
  4. PROPATYLNITRATE [Concomitant]
     Indication: CORONARY ARTERY DISEASE
     Route: 048
     Dates: start: 20100609, end: 20100809
  5. PRILOSEC [Suspect]
     Route: 048
     Dates: start: 20100624, end: 20100809
  6. PRILOSEC [Suspect]
     Route: 048
     Dates: start: 20110220
  7. INSULIN [Suspect]
     Indication: DIABETES MELLITUS
     Route: 003
     Dates: start: 20090908
  8. PRILOSEC [Suspect]
     Indication: GASTRITIS
     Route: 048
     Dates: start: 20090419, end: 20090808
  9. PRILOSEC [Suspect]
     Route: 048
     Dates: start: 20100624, end: 20100809
  10. METOCLOPRAMIDE HYDROCHLORIDE [Suspect]
     Route: 065
  11. METFORMIN HCL [Suspect]
     Route: 048
     Dates: start: 20110220
  12. SOMALGIN [Suspect]
     Indication: ANALGESIC THERAPY
     Route: 048
     Dates: start: 20100623, end: 20100624
  13. CYCLOBENAZPRINE [Suspect]
     Indication: FIBROMYALGIA
     Route: 048
  14. ROSUVASTATIN [Suspect]
     Indication: CORONARY ARTERY DISEASE
     Dosage: DAILY
     Route: 048
     Dates: start: 20090521
  15. PRILOSEC [Suspect]
     Indication: PROPHYLAXIS AGAINST GASTROINTESTINAL ULCER
     Route: 048
     Dates: start: 20090419, end: 20090808
  16. DIPIRONA [Suspect]
     Route: 065
  17. PRILOSEC [Suspect]
     Route: 048
     Dates: start: 20110220
  18. FLUOXETINE HCL [Suspect]
     Indication: DEPRESSION
     Route: 048

REACTIONS (1)
  - ANGINA PECTORIS [None]
